FAERS Safety Report 5519967-3 (Version None)
Quarter: 2007Q4

REPORT INFORMATION
  Report Type: 
  Country: None (occurrence: None)
  Receive Date: 20071116
  Receipt Date: 20061226
  Transmission Date: 20080405
  Serious: No
  Sender: FDA-Public Use
  Company Number: US-BRISTOL-MYERS SQUIBB COMPANY-13625314

PATIENT
  Sex: Male
  Weight: 63 kg

DRUGS (3)
  1. QUESTRAN [Suspect]
  2. GLYBURIDE [Concomitant]
  3. DIOVAN [Concomitant]

REACTIONS (2)
  - NAUSEA [None]
  - VOMITING [None]
